FAERS Safety Report 22162095 (Version 1)
Quarter: 2023Q1

REPORT INFORMATION
  Report Type: Report from Study
  Country: TH (occurrence: TH)
  Receive Date: 20230331
  Receipt Date: 20230331
  Transmission Date: 20230418
  Serious: Yes (Death)
  Sender: FDA-Public Use
  Company Number: TH-BAYER-2023A037296

PATIENT
  Sex: Female

DRUGS (1)
  1. NEXAVAR [Suspect]
     Active Substance: SORAFENIB
     Indication: Hepatocellular carcinoma
     Dosage: 800 MG, QD
     Dates: start: 20230104

REACTIONS (5)
  - Sepsis [Fatal]
  - Pulmonary oedema [Fatal]
  - Renal failure [Fatal]
  - Arrhythmia [Fatal]
  - Blood pressure decreased [Fatal]
